APPROVED DRUG PRODUCT: TEPADINA AND SODIUM CHLORIDE
Active Ingredient: THIOTEPA
Strength: 400MG
Dosage Form/Route: POWDER;INTRAVENOUS
Application: N208264 | Product #004
Applicant: ADIENNE SA
Approved: Jan 15, 2026 | RLD: Yes | RS: Yes | Type: RX